FAERS Safety Report 6813962-X (Version None)
Quarter: 2010Q3

REPORT INFORMATION
  Report Type: 
  Country: None (occurrence: None)
  Receive Date: 20100702
  Receipt Date: 20100623
  Transmission Date: 20110219
  Serious: Yes (Life-Threatening, Hospitalization)
  Sender: FDA-Public Use
  Company Number: JP-JNJFOC-20100510501

PATIENT
  Sex: Female
  Weight: 50 kg

DRUGS (11)
  1. REMICADE [Suspect]
     Indication: RHEUMATOID ARTHRITIS
     Dosage: TOTAL OF 2 INFUSIONS
     Route: 042
  2. REMICADE [Suspect]
     Route: 042
  3. RHEUMATREX [Suspect]
     Indication: RHEUMATOID ARTHRITIS
     Route: 048
  4. OLMETEC [Concomitant]
     Indication: HYPERTENSION
     Route: 048
  5. ARTIST [Concomitant]
     Indication: HYPERTENSION
     Route: 048
  6. AMLODIN [Concomitant]
     Indication: HYPERTENSION
     Route: 048
  7. PLETAL [Concomitant]
     Route: 048
  8. FERROMIA [Concomitant]
     Indication: IRON DEFICIENCY ANAEMIA
     Route: 048
  9. CELECOX [Concomitant]
     Indication: RHEUMATOID ARTHRITIS
     Route: 048
  10. BONALON [Concomitant]
     Indication: OSTEOPOROSIS
     Route: 048
  11. MUCOSTA [Concomitant]
     Indication: RHEUMATOID ARTHRITIS
     Route: 048

REACTIONS (4)
  - BACK PAIN [None]
  - DISSEMINATED INTRAVASCULAR COAGULATION [None]
  - IRON DEFICIENCY ANAEMIA [None]
  - STREPTOCOCCAL SEPSIS [None]
